FAERS Safety Report 19957767 (Version 1)
Quarter: 2021Q4

REPORT INFORMATION
  Report Type: Report from Study
  Country: US (occurrence: US)
  Receive Date: 20211015
  Receipt Date: 20211015
  Transmission Date: 20220303
  Serious: No
  Sender: FDA-Public Use
  Company Number: US-NOVARTISTESTPH-NVSC2021US234544

PATIENT
  Sex: Male

DRUGS (1)
  1. ENTRESTO [Suspect]
     Active Substance: SACUBITRIL\VALSARTAN
     Indication: Product used for unknown indication
     Dosage: 1 DF, BID
     Route: 065

REACTIONS (9)
  - COVID-19 [Recovering/Resolving]
  - Ageusia [Recovering/Resolving]
  - Weight decreased [Unknown]
  - Flatulence [Unknown]
  - Blood glucose abnormal [Unknown]
  - Limb discomfort [Unknown]
  - Anosmia [Recovering/Resolving]
  - Back pain [Unknown]
  - Fall [Unknown]
